FAERS Safety Report 11071186 (Version 2)
Quarter: 2016Q3

REPORT INFORMATION
  Report Type: Spontaneous
  Country: US (occurrence: US)
  Receive Date: 20150428
  Receipt Date: 20160712
  Transmission Date: 20161109
  Serious: Yes (Other)
  Sender: FDA-Public Use
  Company Number: US-PFIZER INC-2015137094

PATIENT
  Age: 77 Year
  Sex: Female

DRUGS (30)
  1. ASPIRIN. [Concomitant]
     Active Substance: ASPIRIN
     Dosage: 81 MG, DAILY PM
     Route: 048
  2. IRON [Concomitant]
     Active Substance: IRON
     Dosage: 65 MG, DAILY
  3. LOVAZA [Concomitant]
     Active Substance: OMEGA-3-ACID ETHYL ESTERS
     Dosage: 2 G, 2X/DAY
     Route: 048
  4. FISH OIL [Concomitant]
     Active Substance: FISH OIL
     Dosage: 1000 MG, 2X/DAY
  5. HUMALOG MIX [Concomitant]
     Active Substance: INSULIN LISPRO
     Dosage: 75-25 KWIKPEN 3 TIMES A DAY 55AM; 30 NOON; 55 EVENING
  6. CALCIUM [Concomitant]
     Active Substance: CALCIUM
     Dosage: 500 MG, DAILY
  7. NITROSTAT [Concomitant]
     Active Substance: NITROGLYCERIN
     Indication: CHEST PAIN
     Dosage: 0.4 MG, EVERY 5 (FIVE) MINUTES AS NEEDED
     Route: 048
  8. PROLIA [Concomitant]
     Active Substance: DENOSUMAB
     Dosage: 1 ML, (60MG TOTAL) UNDER THE SKIN EVERY 6 (SIX) MONTH
     Route: 058
  9. INSULIN [Concomitant]
     Active Substance: INSULIN NOS
     Dosage: 30 X 1/3 NEEDLE TWICE A DAY
  10. AMLODIPINE [Concomitant]
     Active Substance: AMLODIPINE BESYLATE
     Dosage: 2.5 MG, DAILY
  11. LIPITOR [Concomitant]
     Active Substance: ATORVASTATIN CALCIUM
     Dosage: 40 MG, DAILY PM
     Route: 048
  12. ZYLOPRIM [Concomitant]
     Active Substance: ALLOPURINOL
     Dosage: 100 MG, DAILY AM
     Route: 048
  13. LOPRESSOR [Concomitant]
     Active Substance: METOPROLOL TARTRATE
     Dosage: 50 MG, 1X/DAY
     Route: 048
  14. ALLER-FEXORAL [Concomitant]
     Dosage: 1 DF, DAILY
     Route: 048
  15. ZOVIRAX [Concomitant]
     Active Substance: ACYCLOVIR
     Dosage: 400 MG, 2X/DAY [200 MG 2 TWICE A DAY AM AND PM]
     Route: 048
  16. VITAMIN D2 [Concomitant]
     Active Substance: ERGOCALCIFEROL
     Dosage: 2000 IU, 1X/DAY
     Route: 048
  17. LOFIBRA [Concomitant]
     Active Substance: FENOFIBRATE
     Dosage: 67 MG, DAILY
     Route: 048
  18. NOVOLOG [Concomitant]
     Active Substance: INSULIN ASPART
     Dosage: 55 UNITS EVERY AM, 30 UNITS NOON AND 50 UNITS
     Route: 058
  19. MICROLET [Concomitant]
     Dosage: UNK, 2X/DAY
  20. GLUCOSAMINE HCL [Concomitant]
     Active Substance: GLUCOSAMINE
     Dosage: 1500 MG, 2X/DAY
  21. FERROUS SULFATE. [Concomitant]
     Active Substance: FERROUS SULFATE
     Dosage: 325 MG, DAILY
     Route: 048
  22. LOPRESSOR [Concomitant]
     Active Substance: METOPROLOL TARTRATE
     Dosage: 100 MG, DAILY
     Route: 048
  23. VITAMIN D [Concomitant]
     Active Substance: CHOLECALCIFEROL
     Dosage: 2000 MG, DAILY
  24. LYRICA [Suspect]
     Active Substance: PREGABALIN
     Dosage: 75 MG, 2X/DAY
  25. DIOVAN [Concomitant]
     Active Substance: VALSARTAN
     Dosage: 160 MG, DAILY (LUNCH)
     Route: 048
  26. GLUCOSAMINE 1500 COMPLEX [Concomitant]
     Dosage: 1 DF, 2X/DAY
     Route: 048
  27. CALCIUM CARBONATE. [Concomitant]
     Active Substance: CALCIUM CARBONATE
     Dosage: 500 MG, 1X/DAY
     Route: 048
  28. VITAMIN B12 [Concomitant]
     Active Substance: CYANOCOBALAMIN
     Dosage: 1000 UG, 1X/DAY
     Route: 048
  29. IMDUR [Concomitant]
     Active Substance: ISOSORBIDE MONONITRATE
     Indication: HYPERTENSION
     Dosage: 30 MG, 1X/DAY
     Route: 048
  30. KENALOG [Concomitant]
     Active Substance: TRIAMCINOLONE ACETONIDE
     Dosage: 2X/DAY (AS NEEDED)
     Route: 061

REACTIONS (2)
  - Diabetes mellitus [Unknown]
  - Rash [Recovered/Resolved]
